FAERS Safety Report 16534613 (Version 1)
Quarter: 2019Q3

REPORT INFORMATION
  Report Type: Spontaneous
  Country: US (occurrence: US)
  Receive Date: 20190705
  Receipt Date: 20190705
  Transmission Date: 20191004
  Serious: No
  Sender: FDA-Public Use
  Company Number: US-SUNOVION-2019SUN002669

PATIENT
  Age: 85 Year
  Sex: Female

DRUGS (3)
  1. METFORMIN [Concomitant]
     Active Substance: METFORMIN HYDROCHLORIDE
     Indication: DIABETES MELLITUS
     Dosage: 500 MG, QD
     Route: 048
  2. NIFEDIPINE. [Concomitant]
     Active Substance: NIFEDIPINE
     Indication: CARDIAC DISORDER
     Dosage: 60 MG, QD
     Route: 048
  3. BROVANA [Suspect]
     Active Substance: ARFORMOTEROL TARTRATE
     Indication: CHRONIC OBSTRUCTIVE PULMONARY DISEASE
     Dosage: 15MCG/1ML
     Route: 055
     Dates: end: 20190624

REACTIONS (6)
  - Tremor [Not Recovered/Not Resolved]
  - Fatigue [Not Recovered/Not Resolved]
  - Therapy cessation [Unknown]
  - Product dose omission [Unknown]
  - Heart rate increased [Not Recovered/Not Resolved]
  - Wheezing [Not Recovered/Not Resolved]

NARRATIVE: CASE EVENT DATE: 201906
